FAERS Safety Report 14236758 (Version 2)
Quarter: 2017Q4

REPORT INFORMATION
  Report Type: Report from Study
  Country: TW (occurrence: TW)
  Receive Date: 20171129
  Receipt Date: 20171204
  Transmission Date: 20180321
  Serious: Yes (Death, Other)
  Sender: FDA-Public Use
  Company Number: TW-PFIZER INC-2017069349

PATIENT
  Age: 56 Year
  Sex: Female
  Weight: 157 kg

DRUGS (2)
  1. PALBOCICLIB [Suspect]
     Active Substance: PALBOCICLIB
     Dosage: 125 MG, QD 3 WEEKS ON, 1 WEEK OFF
     Route: 048
     Dates: start: 20161019, end: 20161215
  2. ANAZO /01285001/ [Concomitant]
     Indication: BREAST CANCER METASTATIC
     Dosage: 1 MG, QD
     Route: 048
     Dates: start: 20161104

REACTIONS (3)
  - Renal impairment [Unknown]
  - Hepatic function abnormal [Unknown]
  - Death [Fatal]

NARRATIVE: CASE EVENT DATE: 20170105
